FAERS Safety Report 6919228-1 (Version None)
Quarter: 2010Q3

REPORT INFORMATION
  Report Type: 
  Country: None (occurrence: None)
  Receive Date: 20100811
  Receipt Date: 20100802
  Transmission Date: 20110219
  Serious: Yes (Other)
  Sender: FDA-Public Use
  Company Number: BR-PFIZER INC-2010096861

PATIENT
  Age: 34 Year
  Sex: Female
  Weight: 53 kg

DRUGS (1)
  1. DEPO-PROVERA [Suspect]
     Dosage: SINGLE DOSE
     Route: 030
     Dates: start: 20091201, end: 20091201

REACTIONS (2)
  - AMENORRHOEA [None]
  - WEIGHT DECREASED [None]
